FAERS Safety Report 6136891-6 (Version None)
Quarter: 2009Q1

REPORT INFORMATION
  Report Type: 
  Country: None (occurrence: None)
  Receive Date: 20090326
  Receipt Date: 20090326
  Transmission Date: 20090719
  Serious: Yes (Death)
  Sender: FDA-Public Use
  Company Number: None

PATIENT
  Age: 74 Year
  Sex: Male
  Weight: 79.9 kg

DRUGS (5)
  1. HEPARIN [Suspect]
     Indication: ACUTE MYOCARDIAL INFARCTION
     Dosage: HEPARIN 50 U/ML INFUSED
     Dates: start: 20090216
  2. . [Concomitant]
  3. ANGIOMAX BOLUS AND DRIP [Concomitant]
  4. . [Concomitant]
  5. PLAVIX [Concomitant]

REACTIONS (2)
  - IATROGENIC INJURY [None]
  - WRONG DRUG ADMINISTERED [None]
